FAERS Safety Report 16620774 (Version 2)
Quarter: 2020Q2

REPORT INFORMATION
  Report Type: Spontaneous
  Country: ES (occurrence: ES)
  Receive Date: 20190723
  Receipt Date: 20200518
  Transmission Date: 20200713
  Serious: Yes (Hospitalization, Other)
  Sender: FDA-Public Use
  Company Number: PHHY2019ES150120

PATIENT
  Age: 74 Year
  Sex: Female

DRUGS (6)
  1. COLCHICINE. [Suspect]
     Active Substance: COLCHICINE
     Indication: HYPERTENSIVE HEART DISEASE
  2. COLCHICINE. [Suspect]
     Active Substance: COLCHICINE
     Indication: FAMILIAL MEDITERRANEAN FEVER
     Dosage: 0.5 MG, QD
     Route: 065
     Dates: start: 2006
  3. CANAKINUMAB. [Concomitant]
     Active Substance: CANAKINUMAB
     Indication: PRODUCT USED FOR UNKNOWN INDICATION
     Dosage: 150 MG, Q2MO
     Route: 058
     Dates: start: 201709
  4. ETANERCEPT [Suspect]
     Active Substance: ETANERCEPT
     Indication: FAMILIAL MEDITERRANEAN FEVER
     Dosage: 50 MG, QW
     Route: 058
     Dates: start: 201509
  5. COLCHICINE. [Suspect]
     Active Substance: COLCHICINE
     Indication: CHRONIC KIDNEY DISEASE
  6. DARBEPOETIN ALFA [Suspect]
     Active Substance: DARBEPOETIN ALFA
     Indication: NEPHROGENIC ANAEMIA
     Dosage: 150 MG, UNK
     Route: 058

REACTIONS (10)
  - Product use issue [Unknown]
  - Product use in unapproved indication [Unknown]
  - C-reactive protein increased [Not Recovered/Not Resolved]
  - Neutrophilia [Not Recovered/Not Resolved]
  - Drug ineffective [Unknown]
  - Familial mediterranean fever [Recovered/Resolved]
  - Drug ineffective for unapproved indication [Unknown]
  - Familial mediterranean fever [Unknown]
  - Cardiac failure [Unknown]
  - Off label use [Unknown]

NARRATIVE: CASE EVENT DATE: 2009
